FAERS Safety Report 10280310 (Version 1)
Quarter: 2014Q3

REPORT INFORMATION
  Report Type: Spontaneous
  Country: IT (occurrence: IT)
  Receive Date: 20140707
  Receipt Date: 20140707
  Transmission Date: 20150326
  Serious: Yes (Other)
  Sender: FDA-Public Use
  Company Number: IT-ELI_LILLY_AND_COMPANY-IT201406009055

PATIENT
  Age: 49 Year
  Sex: Female

DRUGS (3)
  1. DEPAKIN [Suspect]
     Active Substance: VALPROATE SODIUM
     Dosage: UNK, UNKNOWN
     Route: 065
     Dates: start: 20140105, end: 20140105
  2. ZYPREXA [Suspect]
     Active Substance: OLANZAPINE
     Dosage: 40 MG, SINGLE
     Route: 048
     Dates: start: 20140105, end: 20140105
  3. ALCOHOL. [Interacting]
     Active Substance: ALCOHOL
     Dosage: UNK, UNKNOWN
     Route: 065

REACTIONS (5)
  - Dyspnoea [Recovering/Resolving]
  - Drug abuse [Recovering/Resolving]
  - Intentional overdose [Unknown]
  - Drug interaction [Unknown]
  - Sopor [Recovering/Resolving]

NARRATIVE: CASE EVENT DATE: 20140105
